FAERS Safety Report 19169401 (Version 1)
Quarter: 2021Q2

REPORT INFORMATION
  Report Type: Spontaneous
  Country: JP (occurrence: JP)
  Receive Date: 20210422
  Receipt Date: 20210422
  Transmission Date: 20210717
  Serious: Yes (Other)
  Sender: FDA-Public Use
  Company Number: JP-GILEAD-2021-0525567

PATIENT
  Age: 47 Year
  Sex: Male

DRUGS (2)
  1. ZEFIX [Concomitant]
     Active Substance: LAMIVUDINE
     Dosage: UNK
     Route: 048
  2. VEMLIDY [Suspect]
     Active Substance: TENOFOVIR ALAFENAMIDE FUMARATE
     Indication: PRODUCT USED FOR UNKNOWN INDICATION
     Dosage: UNK
     Route: 048

REACTIONS (2)
  - Renal impairment [Unknown]
  - Hypophosphataemia [Unknown]
